FAERS Safety Report 16478447 (Version 1)
Quarter: 2019Q2

REPORT INFORMATION
  Report Type: Spontaneous
  Country: IT (occurrence: IT)
  Receive Date: 20190626
  Receipt Date: 20190626
  Transmission Date: 20190711
  Serious: Yes (Death, Hospitalization)
  Sender: FDA-Public Use
  Company Number: IT-INCYTE CORPORATION-2019IN006041

PATIENT

DRUGS (1)
  1. JAKAVI [Suspect]
     Active Substance: RUXOLITINIB
     Indication: PRODUCT USED FOR UNKNOWN INDICATION
     Dosage: 20 MG, QD
     Route: 065

REACTIONS (5)
  - Lymphadenopathy [Fatal]
  - Respiratory failure [Fatal]
  - Pneumonia [Fatal]
  - Chronic kidney disease [Fatal]
  - Listeriosis [Fatal]

NARRATIVE: CASE EVENT DATE: 20190517
